FAERS Safety Report 5596219-7 (Version None)
Quarter: 2007Q4

REPORT INFORMATION
  Report Type: 
  Country: None (occurrence: None)
  Receive Date: 20071218
  Receipt Date: 20070508
  Transmission Date: 20080405
  Serious: Yes (Other)
  Sender: FDA-Public Use
  Company Number: 2006115448

PATIENT

DRUGS (3)
  1. BEXTRA [Suspect]
     Dosage: ORAL
     Route: 048
     Dates: start: 20021201, end: 20051101
  2. CELEBREX [Suspect]
     Dosage: ORAL
     Route: 048
     Dates: start: 19991201, end: 20031201
  3. VIOXX [Concomitant]
     Dosage: ORAL
     Route: 048
     Dates: start: 19991101

REACTIONS (3)
  - CORONARY ARTERY DISEASE [None]
  - DEPRESSION [None]
  - MYOCARDIAL INFARCTION [None]
